FAERS Safety Report 9254081 (Version 1)
Quarter: 2013Q2

REPORT INFORMATION
  Report Type: Spontaneous
  Country: US (occurrence: None)
  Receive Date: 20130419
  Receipt Date: 20130419
  Transmission Date: 20140414
  Serious: Yes (Death)
  Sender: FDA-Public Use
  Company Number: PIN-2012-00153

PATIENT
  Sex: Male

DRUGS (1)
  1. PORFIMER SODIUM [Suspect]
     Route: 042

REACTIONS (1)
  - Drug ineffective [None]
